FAERS Safety Report 11334368 (Version 1)
Quarter: 2015Q3

REPORT INFORMATION
  Report Type: Report from Study
  Country: US (occurrence: US)
  Receive Date: 20150804
  Receipt Date: 20150804
  Transmission Date: 20151125
  Serious: Yes (Other)
  Sender: FDA-Public Use
  Company Number: US-ROCHE-1415957

PATIENT
  Age: 14 Year
  Sex: Male
  Weight: 70.6 kg

DRUGS (7)
  1. ZOLOFT [Concomitant]
     Active Substance: SERTRALINE HYDROCHLORIDE
  2. NUTROPIN AQ [Suspect]
     Active Substance: SOMATROPIN
     Route: 058
     Dates: start: 20140226
  3. NUTROPIN AQ [Suspect]
     Active Substance: SOMATROPIN
     Dosage: 6 DAYS A WEEK
     Route: 058
  4. ZYRTEC [Concomitant]
     Active Substance: CETIRIZINE HYDROCHLORIDE
     Dosage: FREQUENCY:PRN
     Route: 065
  5. INVEGA [Concomitant]
     Active Substance: PALIPERIDONE
  6. NUTROPIN AQ [Suspect]
     Active Substance: SOMATROPIN
     Indication: GROWTH RETARDATION
     Route: 058
     Dates: end: 20140226
  7. CONCERTA [Concomitant]
     Active Substance: METHYLPHENIDATE HYDROCHLORIDE

REACTIONS (6)
  - Drug ineffective [Unknown]
  - Growth retardation [Unknown]
  - Insulin-like growth factor increased [Unknown]
  - Influenza [Unknown]
  - Drug dose omission [Unknown]
  - Upper respiratory tract infection [Unknown]

NARRATIVE: CASE EVENT DATE: 20140226
